FAERS Safety Report 7514890-7 (Version None)
Quarter: 2011Q2

REPORT INFORMATION
  Report Type: 
  Country: None (occurrence: None)
  Receive Date: 20110601
  Receipt Date: 20110516
  Transmission Date: 20111010
  Serious: No
  Sender: FDA-Public Use
  Company Number: US-B.I. PHARMACEUTICALS,INC./RIDGEFIELD-2011-BP-13135BP

PATIENT
  Age: 65 Year
  Sex: Male

DRUGS (3)
  1. SPIRIVA [Suspect]
     Indication: CHRONIC OBSTRUCTIVE PULMONARY DISEASE
     Dosage: 18 MCG
     Route: 055
     Dates: start: 20110217, end: 20110425
  2. ASPIRIN [Concomitant]
     Indication: ROUTINE HEALTH MAINTENANCE
  3. TERAZOSIN HCL [Suspect]
     Indication: BENIGN PROSTATIC HYPERPLASIA

REACTIONS (3)
  - LOCAL SWELLING [None]
  - EYE SWELLING [None]
  - VISION BLURRED [None]
